FAERS Safety Report 15017658 (Version 1)
Quarter: 2018Q2

REPORT INFORMATION
  Report Type: Spontaneous
  Country: US (occurrence: US)
  Receive Date: 20180523
  Receipt Date: 20180523
  Transmission Date: 20180711
  Serious: Yes (Disabling, Other)
  Sender: FDA-Public Use
  Company Number: None

PATIENT
  Age: 42 Year
  Sex: Female
  Weight: 68.49 kg

DRUGS (4)
  1. VITAMIN D [Concomitant]
     Active Substance: CHOLECALCIFEROL
  2. DHA OMEGA [Concomitant]
  3. OCREVUS [Suspect]
     Active Substance: OCRELIZUMAB
     Indication: MULTIPLE SCLEROSIS
     Dates: start: 201707, end: 20180125
  4. CYAMCOBALAMICE [Concomitant]

REACTIONS (5)
  - Headache [None]
  - Abdominal distension [None]
  - Fatigue [None]
  - Depression [None]
  - Nausea [None]

NARRATIVE: CASE EVENT DATE: 20180125
